FAERS Safety Report 16924756 (Version 2)
Quarter: 2019Q4

REPORT INFORMATION
  Report Type: Spontaneous
  Country: MX (occurrence: MX)
  Receive Date: 20191016
  Receipt Date: 20191021
  Transmission Date: 20200122
  Serious: Yes (Other)
  Sender: FDA-Public Use
  Company Number: MX-PFIZER INC-2019447602

PATIENT
  Age: 40 Year
  Sex: Male
  Weight: 70 kg

DRUGS (1)
  1. GEODON [Suspect]
     Active Substance: ZIPRASIDONE HYDROCHLORIDE\ZIPRASIDONE MESYLATE
     Dosage: 80 MG 2X/DAY (160 MG/DAY)

REACTIONS (4)
  - Cardiac failure [Unknown]
  - Dyspnoea [Unknown]
  - Peripheral swelling [Unknown]
  - Fatigue [Unknown]
